FAERS Safety Report 7441199-2 (Version None)
Quarter: 2011Q2

REPORT INFORMATION
  Report Type: 
  Country: None (occurrence: None)
  Receive Date: 20110428
  Receipt Date: 20110418
  Transmission Date: 20111010
  Serious: No
  Sender: FDA-Public Use
  Company Number: US-BIOGENIDEC-2010BI031327

PATIENT
  Age: 44 Year
  Sex: Female

DRUGS (3)
  1. TYSABRI [Suspect]
     Indication: MULTIPLE SCLEROSIS
     Route: 042
     Dates: start: 20100604, end: 20100702
  2. TYSABRI [Suspect]
     Route: 042
     Dates: start: 20101129
  3. ALPRAZOLAM [Concomitant]
     Indication: PREMEDICATION

REACTIONS (8)
  - THROAT IRRITATION [None]
  - FATIGUE [None]
  - DYSPNOEA [None]
  - PAIN [None]
  - MOBILITY DECREASED [None]
  - HEART RATE INCREASED [None]
  - PANIC ATTACK [None]
  - COORDINATION ABNORMAL [None]
